FAERS Safety Report 23831088 (Version 5)
Quarter: 2024Q3

REPORT INFORMATION
  Report Type: Report from Study
  Country: US (occurrence: US)
  Receive Date: 20240508
  Receipt Date: 20240913
  Transmission Date: 20241017
  Serious: Yes (Other)
  Sender: RANBAXY
  Company Number: US-SUN PHARMACEUTICAL INDUSTRIES LTD-2024R1-444683

PATIENT
  Age: 19 Year
  Sex: Female

DRUGS (1)
  1. ISOTRETINOIN [Suspect]
     Active Substance: ISOTRETINOIN
     Indication: Product used for unknown indication
     Dosage: 40 MILLIGRAM, QD
     Route: 065
     Dates: start: 20240325, end: 20240427

REACTIONS (6)
  - Exposure during pregnancy [Unknown]
  - Urinary tract infection [Unknown]
  - Abortion [Unknown]
  - Therapy cessation [Unknown]
  - Lip dry [Unknown]
  - Papule [Unknown]

NARRATIVE: CASE EVENT DATE: 20240424
